FAERS Safety Report 7450677-1 (Version None)
Quarter: 2011Q2

REPORT INFORMATION
  Report Type: 
  Country: None (occurrence: None)
  Receive Date: 20110502
  Receipt Date: 20110428
  Transmission Date: 20111010
  Serious: Yes (Hospitalization, Other)
  Sender: FDA-Public Use
  Company Number: AU-PFIZER INC-2011093261

PATIENT
  Age: 42 Year
  Sex: Male

DRUGS (4)
  1. KEFLEX [Concomitant]
  2. TEMAZE [Concomitant]
  3. CHAMPIX [Suspect]
     Dosage: 2 MG, 1X/DAY
     Dates: start: 20101220, end: 20110120
  4. SYMBICORT [Concomitant]

REACTIONS (5)
  - SWELLING FACE [None]
  - URTICARIA [None]
  - RASH [None]
  - DYSPNOEA [None]
  - DERMATITIS [None]
